FAERS Safety Report 14280687 (Version 1)
Quarter: 2017Q4

REPORT INFORMATION
  Report Type: Spontaneous
  Country: US (occurrence: US)
  Receive Date: 20171213
  Receipt Date: 20171213
  Transmission Date: 20180321
  Serious: Yes (Other)
  Sender: FDA-Public Use
  Company Number: US-FRESENIUS KABI-FK201710685

PATIENT
  Age: 32 Year
  Sex: Female

DRUGS (9)
  1. NOREPINEPHRINE. [Concomitant]
     Active Substance: NOREPINEPHRINE
     Indication: OVERDOSE
     Route: 041
  2. CALCIUM GLUCONATE. [Concomitant]
     Active Substance: CALCIUM GLUCONATE
     Indication: OVERDOSE
     Route: 065
  3. VASOPRESSIN. [Concomitant]
     Active Substance: VASOPRESSIN
     Indication: OVERDOSE
     Route: 041
  4. FAT EMULSION NOS [Suspect]
     Active Substance: EGG PHOSPHOLIPIDS\SAFFLOWER OIL\SOYBEAN OIL
     Indication: OVERDOSE
     Route: 065
  5. INSULIN [Concomitant]
     Active Substance: INSULIN NOS
     Indication: OVERDOSE
     Route: 065
  6. DOPAMINE [Concomitant]
     Active Substance: DOPAMINE\DOPAMINE HYDROCHLORIDE
     Indication: OVERDOSE
     Route: 041
  7. EPINEPHRINE. [Concomitant]
     Active Substance: EPINEPHRINE
     Indication: OVERDOSE
     Route: 041
  8. GLUCAGON. [Concomitant]
     Active Substance: GLUCAGON
     Indication: OVERDOSE
     Route: 065
  9. DEXTROSE 10% [Concomitant]
     Active Substance: DEXTROSE
     Indication: OVERDOSE
     Route: 041

REACTIONS (6)
  - Pancreatitis [Recovered/Resolved]
  - Hyperlipidaemia [Recovered/Resolved]
  - Drug effective for unapproved indication [Recovered/Resolved]
  - Off label use [Recovered/Resolved]
  - Laboratory test interference [Recovered/Resolved]
  - Acute respiratory distress syndrome [Recovered/Resolved]
